FAERS Safety Report 16619151 (Version 1)
Quarter: 2019Q3

REPORT INFORMATION
  Report Type: Spontaneous
  Country: US (occurrence: US)
  Receive Date: 20190723
  Receipt Date: 20190723
  Transmission Date: 20191004
  Serious: No
  Sender: FDA-Public Use
  Company Number: US-TEVA-2019-US-1081370

PATIENT
  Age: 29 Year
  Sex: Female

DRUGS (5)
  1. MOXIFLOXACIN. [Suspect]
     Active Substance: MOXIFLOXACIN
     Indication: INFECTIVE KERATITIS
     Dosage: 0.5 %
     Route: 061
  2. FORTIFIED TOBRAMYCIN [Suspect]
     Active Substance: TOBRAMYCIN
     Indication: INFECTIVE KERATITIS
     Dosage: DOSAGE STRENGTH: 14MG/ML
     Route: 065
  3. VITAMIN C [Concomitant]
     Active Substance: ASCORBIC ACID
     Indication: INFECTIVE KERATITIS
     Dosage: CONTINUED AFTER RIBOFLAVIN PHOTODYNAMIC ANTIMICROBIAL THERAPY
     Route: 065
  4. DOXYCYCLINE. [Suspect]
     Active Substance: DOXYCYCLINE
     Indication: INFECTIVE KERATITIS
     Dosage: 200 MILLIGRAM DAILY; CONTINUED AFTER RIBOFLAVIN PHOTODYNAMIC ANTIMICROBIAL THERAPY
     Route: 048
  5. PREDNISOLONE ACETATE. [Concomitant]
     Active Substance: PREDNISOLONE ACETATE
     Indication: INFECTIVE KERATITIS
     Dosage: CONTINUED AFTER RIBOFLAVIN PHOTODYNAMIC ANTIMICROBIAL THERAPY
     Route: 065

REACTIONS (1)
  - Therapy non-responder [Unknown]
